FAERS Safety Report 9233794 (Version 1)
Quarter: 2013Q1

REPORT INFORMATION
  Report Type: Spontaneous
  Country: US (occurrence: None)
  Receive Date: 20121031
  Receipt Date: 20121031
  Transmission Date: 20140127
  Serious: No
  Sender: FDA-Public Use
  Company Number: PHEH2012US014873

PATIENT
  Age: 49 Year
  Sex: Female

DRUGS (9)
  1. GILENYA [Suspect]
     Route: 048
  2. GABAPENTIN (GABAPENTIN) [Concomitant]
  3. DIAZEPAM (DIAZEPAM) [Concomitant]
  4. BACLOFEN (BACLOFEN)TABLET [Concomitant]
  5. AMANTADINE (AMANTADINE) CAPSULE [Concomitant]
  6. GLYCOPYPROLATE (GLYCOPYRONIUM BROMIDE_ [Concomitant]
  7. VITAMIN D3 (COLECALCIFEROL)CAPSULE [Concomitant]
  8. ZEGERID (OMEPRAZOLE, SODIUM BICARBONATE)CAPSULE [Concomitant]
  9. TEMAZEPAM (TENAZEPAM) [Concomitant]

REACTIONS (2)
  - Fatigue [None]
  - Palpitations [None]
